FAERS Safety Report 6741769-0 (Version None)
Quarter: 2010Q2

REPORT INFORMATION
  Report Type: 
  Country: None (occurrence: None)
  Receive Date: 20100526
  Receipt Date: 20100518
  Transmission Date: 20101027
  Serious: Yes (Hospitalization)
  Sender: FDA-Public Use
  Company Number: CO-ROCHE-701253

PATIENT
  Sex: Female

DRUGS (1)
  1. AVASTIN [Suspect]
     Route: 042
     Dates: start: 20090826, end: 20100315

REACTIONS (3)
  - HYPERTENSION [None]
  - TACHYCARDIA [None]
  - VOMITING [None]
